FAERS Safety Report 19622344 (Version 1)
Quarter: 2021Q3

REPORT INFORMATION
  Report Type: Spontaneous
  Country: US (occurrence: US)
  Receive Date: 20210728
  Receipt Date: 20210728
  Transmission Date: 20211014
  Serious: Yes (Other)
  Sender: FDA-Public Use
  Company Number: US-SA-2021SA245025

PATIENT
  Sex: Male

DRUGS (2)
  1. ICY HOT [Suspect]
     Active Substance: MENTHOL\METHYL SALICYLATE
     Route: 065
  2. BIOFREEZE [Concomitant]
     Active Substance: MENTHOL

REACTIONS (1)
  - Burns third degree [Unknown]
